FAERS Safety Report 11629639 (Version 2)
Quarter: 2015Q4

REPORT INFORMATION
  Report Type: Spontaneous
  Country: CN (occurrence: CN)
  Receive Date: 20151014
  Receipt Date: 20151030
  Transmission Date: 20160304
  Serious: Yes (Other)
  Sender: FDA-Public Use
  Company Number: CN-BAYER-2015-441495

PATIENT
  Sex: Female

DRUGS (1)
  1. YASMIN [Suspect]
     Active Substance: DROSPIRENONE\ETHINYL ESTRADIOL
     Dosage: UNK
     Route: 048
     Dates: start: 2015

REACTIONS (4)
  - Abnormal withdrawal bleeding [None]
  - Diarrhoea [None]
  - Cerebrovascular insufficiency [None]
  - Menorrhagia [Recovered/Resolved]

NARRATIVE: CASE EVENT DATE: 20151002
